FAERS Safety Report 20509081 (Version 4)
Quarter: 2022Q2

REPORT INFORMATION
  Report Type: Report from Study
  Country: CL (occurrence: CL)
  Receive Date: 20220223
  Receipt Date: 20220420
  Transmission Date: 20220721
  Serious: No
  Sender: FDA-Public Use
  Company Number: CL-SA-SAC20220218001460

PATIENT
  Age: 71 Year
  Sex: Male

DRUGS (10)
  1. CEMIPLIMAB [Suspect]
     Active Substance: CEMIPLIMAB
     Indication: Skin cancer metastatic
     Dosage: UNK
     Route: 065
  2. CEMIPLIMAB [Suspect]
     Active Substance: CEMIPLIMAB
     Dosage: 350 MG, INFUSION RATE (MG/H): 700
     Route: 042
     Dates: start: 20211213, end: 20211213
  3. THOR-707 [Suspect]
     Active Substance: THOR-707
     Indication: Skin cancer metastatic
     Dosage: UNK
     Route: 065
  4. THOR-707 [Suspect]
     Active Substance: THOR-707
     Dosage: 1344 UG, INFUSION RATE (MG/H): 2.688
     Route: 042
     Dates: start: 20211213, end: 20211213
  5. SODIUM CHLORIDE [Concomitant]
     Active Substance: SODIUM CHLORIDE
     Indication: Prophylaxis
     Dosage: UNK
     Route: 042
     Dates: start: 20211213, end: 20211213
  6. ACETAMINOPHEN [Concomitant]
     Active Substance: ACETAMINOPHEN
     Indication: Prophylaxis
     Dosage: UNK
     Route: 048
     Dates: start: 20211213, end: 20211213
  7. DIPHENHYDRAMINE [Concomitant]
     Active Substance: DIPHENHYDRAMINE
     Indication: Prophylaxis
     Dosage: UNK
     Route: 042
     Dates: start: 20211213, end: 20211213
  8. ONDANSETRON [Concomitant]
     Active Substance: ONDANSETRON
     Indication: Prophylaxis
     Dosage: UNK
     Route: 042
     Dates: start: 20211213, end: 20211213
  9. ACETAMINOPHEN [Concomitant]
     Active Substance: ACETAMINOPHEN
     Indication: Product used for unknown indication
     Dosage: UNK
     Route: 042
     Dates: start: 20211214, end: 20211214
  10. METFORMINE                         /00082701/ [Concomitant]
     Indication: Product used for unknown indication
     Dosage: UNK
     Route: 048
     Dates: start: 2019

REACTIONS (1)
  - Thrombocytopenia [Recovered/Resolved]

NARRATIVE: CASE EVENT DATE: 20211215
